FAERS Safety Report 9719151 (Version 2)
Quarter: 2013Q4

REPORT INFORMATION
  Report Type: Report from Study
  Country: US (occurrence: US)
  Receive Date: 20131127
  Receipt Date: 20131127
  Transmission Date: 20140711
  Serious: No
  Sender: FDA-Public Use
  Company Number: PHEH2012US023401

PATIENT
  Sex: Male
  Weight: 74.83 kg

DRUGS (6)
  1. TASIGNA [Suspect]
     Indication: CHRONIC MYELOID LEUKAEMIA
     Dosage: 300 MG, BID
     Route: 048
  2. LORAZEPAM [Concomitant]
  3. IMITREX [Concomitant]
     Dosage: 25 MG, UNK
  4. FIORICET [Concomitant]
  5. SUBOXONE [Concomitant]
  6. MULTIVITAMINS [Concomitant]

REACTIONS (8)
  - Chills [Unknown]
  - Nausea [Unknown]
  - Headache [Unknown]
  - Myalgia [Unknown]
  - Arthralgia [Unknown]
  - Muscle spasms [Unknown]
  - Hyperhidrosis [Unknown]
  - Vomiting [Unknown]
